FAERS Safety Report 14024158 (Version 1)
Quarter: 2017Q3

REPORT INFORMATION
  Report Type: Spontaneous
  Country: JP (occurrence: JP)
  Receive Date: 20170929
  Receipt Date: 20170929
  Transmission Date: 20171128
  Serious: Yes (Hospitalization)
  Sender: FDA-Public Use
  Company Number: JP-JNJFOC-20170724254

PATIENT
  Age: 68 Year
  Sex: Male
  Weight: 62 kg

DRUGS (4)
  1. XARELTO [Suspect]
     Active Substance: RIVAROXABAN
     Indication: ATRIAL FIBRILLATION
     Route: 048
     Dates: start: 20120702, end: 20170723
  2. MIKELAN [Concomitant]
     Active Substance: CARTEOLOL HYDROCHLORIDE
     Route: 048
     Dates: end: 20170723
  3. XARELTO [Suspect]
     Active Substance: RIVAROXABAN
     Indication: CEREBROVASCULAR ACCIDENT PROPHYLAXIS
     Route: 048
     Dates: start: 20120702, end: 20170723
  4. DIGOSIN [Concomitant]
     Active Substance: DIGOXIN
     Route: 048
     Dates: end: 20170723

REACTIONS (2)
  - Hydrocephalus [Recovered/Resolved]
  - Thalamus haemorrhage [Recovered/Resolved]

NARRATIVE: CASE EVENT DATE: 20170724
